FAERS Safety Report 8475143-6 (Version None)
Quarter: 2012Q2

REPORT INFORMATION
  Report Type: 
  Country: None (occurrence: None)
  Receive Date: 20120628
  Receipt Date: 20120622
  Transmission Date: 20120825
  Serious: Yes (Other)
  Sender: FDA-Public Use
  Company Number: US-PFIZER INC-2012118426

PATIENT
  Sex: Female
  Weight: 63.5 kg

DRUGS (3)
  1. LYRICA [Suspect]
     Indication: HEADACHE
     Dosage: 100 MG, 1X/DAY
     Route: 048
  2. LYRICA [Suspect]
     Indication: FACIAL NEURALGIA
     Dosage: UNK
     Route: 048
  3. PAXIL [Concomitant]
     Dosage: UNK

REACTIONS (3)
  - EXTRAOCULAR MUSCLE PARESIS [None]
  - DIPLOPIA [None]
  - VISUAL IMPAIRMENT [None]
